FAERS Safety Report 6255092-4 (Version None)
Quarter: 2009Q3

REPORT INFORMATION
  Report Type: 
  Country: None (occurrence: None)
  Receive Date: 20090702
  Receipt Date: 20090620
  Transmission Date: 20100115
  Serious: Yes (Hospitalization, Other)
  Sender: FDA-Public Use
  Company Number: US-PFIZER INC-2009213230

PATIENT
  Sex: Male
  Weight: 111 kg

DRUGS (9)
  1. LYRICA [Suspect]
     Indication: FIBROMYALGIA
     Dosage: 150 MG, 3X/DAY
     Route: 048
     Dates: start: 20081104, end: 20090416
  2. DRUG, UNSPECIFIED [Suspect]
     Dosage: UNK
  3. OXYCODONE [Concomitant]
     Dosage: UNK
  4. XANAX [Concomitant]
     Dosage: UNK
  5. ELAVIL [Concomitant]
     Indication: PAIN
     Dosage: 50 MG
  6. ELAVIL [Concomitant]
     Indication: SLEEP DISORDER
  7. BACLOFEN [Concomitant]
     Dosage: 20 MG, 3X/DAY
  8. PERCOCET [Concomitant]
     Dosage: 325 MG, UNK
  9. ULTRAM ER [Concomitant]
     Dosage: 200 MG, UNK

REACTIONS (13)
  - BRAIN INJURY [None]
  - DEHYDRATION [None]
  - DRY MOUTH [None]
  - DYSPHAGIA [None]
  - GRAND MAL CONVULSION [None]
  - HEART INJURY [None]
  - OEDEMA [None]
  - ORTHOSTATIC HYPOTENSION [None]
  - PAIN [None]
  - RENAL FAILURE ACUTE [None]
  - SYNCOPE [None]
  - TACHYCARDIA [None]
  - VISUAL IMPAIRMENT [None]
